FAERS Safety Report 7955739-8 (Version None)
Quarter: 2011Q4

REPORT INFORMATION
  Report Type: 
  Country: None (occurrence: None)
  Receive Date: 20111204
  Receipt Date: 20111114
  Transmission Date: 20120403
  Serious: No
  Sender: FDA-Public Use
  Company Number: US-ROXANE LABORATORIES, INC.-2011-RO-01643RO

PATIENT
  Sex: Female

DRUGS (5)
  1. LEVORPHANOL TARTRATE [Suspect]
     Indication: BONE PAIN
     Dosage: 4 MG
  2. LISINOPRIL [Concomitant]
  3. KLONOPIN [Concomitant]
  4. LEVOTHROID [Concomitant]
  5. ACIPHEX [Concomitant]

REACTIONS (2)
  - ABDOMINAL PAIN UPPER [None]
  - DIARRHOEA [None]
